FAERS Safety Report 11727552 (Version 1)
Quarter: 2015Q4

REPORT INFORMATION
  Report Type: Spontaneous
  Country: MX (occurrence: MX)
  Receive Date: 20151112
  Receipt Date: 20151112
  Transmission Date: 20160304
  Serious: Yes (Other)
  Sender: FDA-Public Use
  Company Number: MX-PFIZER INC-2015381581

PATIENT
  Age: 85 Year
  Sex: Male

DRUGS (1)
  1. VIAGRA [Suspect]
     Active Substance: SILDENAFIL CITRATE
     Dosage: 100 MG, DEFORE SEXUAL ACT SOME TIMES

REACTIONS (3)
  - Hypoacusis [Unknown]
  - Visual acuity reduced [Unknown]
  - Dry throat [Unknown]
